FAERS Safety Report 5122502-5 (Version None)
Quarter: 2006Q4

REPORT INFORMATION
  Report Type: 
  Country: None (occurrence: None)
  Receive Date: 20061004
  Receipt Date: 20060925
  Transmission Date: 20070319
  Serious: Yes (Hospitalization, Other)
  Sender: FDA-Public Use
  Company Number: 163-20785-06080232

PATIENT
  Sex: Male

DRUGS (3)
  1. THALOMID [Suspect]
     Indication: MULTIPLE MYELOMA
     Dosage: 100 MG, 1 IN 1 D, ORAL
     Route: 048
     Dates: start: 20060713, end: 20060807
  2. DEXAMETHASONE TAB [Suspect]
     Indication: MULTIPLE MYELOMA
  3. TYLENOL WITH CODEINE                      (PANADEINE CO) [Concomitant]

REACTIONS (11)
  - CYSTITIS HAEMORRHAGIC [None]
  - DIALYSIS [None]
  - HEPATIC FUNCTION ABNORMAL [None]
  - LUNG INFILTRATION [None]
  - NEUTROPENIA [None]
  - PANCYTOPENIA [None]
  - PULMONARY HAEMORRHAGE [None]
  - PYREXIA [None]
  - RENAL FAILURE [None]
  - THROMBOTIC THROMBOCYTOPENIC PURPURA [None]
  - URETHRAL HAEMORRHAGE [None]
